FAERS Safety Report 12205214 (Version 2)
Quarter: 2016Q3

REPORT INFORMATION
  Report Type: Spontaneous
  Country: US (occurrence: US)
  Receive Date: 20160323
  Receipt Date: 20160708
  Transmission Date: 20161109
  Serious: Yes (Other)
  Sender: FDA-Public Use
  Company Number: US-ASTRAZENECA-2016SE29233

PATIENT
  Age: 64 Year
  Sex: Male

DRUGS (24)
  1. IBUPROFEN. [Concomitant]
     Active Substance: IBUPROFEN
  2. VICODIN [Concomitant]
     Active Substance: ACETAMINOPHEN\HYDROCODONE BITARTRATE
  3. VITAMIN D3 [Concomitant]
     Active Substance: CHOLECALCIFEROL
  4. PREDNISOLONE. [Concomitant]
     Active Substance: PREDNISOLONE
  5. HYDROXYUREA. [Concomitant]
     Active Substance: HYDROXYUREA
  6. PROTEGRA [Concomitant]
  7. MAGNESIUM [Concomitant]
     Active Substance: MAGNESIUM
  8. FISH OIL [Concomitant]
     Active Substance: FISH OIL
  9. JAKAFI [Suspect]
     Active Substance: RUXOLITINIB
     Indication: MYELOFIBROSIS
     Route: 048
     Dates: start: 201512
  10. MULTIVITAMIN 50+ [Concomitant]
  11. VITAMIN C [Concomitant]
     Active Substance: ASCORBIC ACID
  12. LORTAB [Concomitant]
     Active Substance: ACETAMINOPHEN\HYDROCODONE BITARTRATE
  13. OMEGA-3 FISH OIL [Concomitant]
     Active Substance: FISH OIL\OMEGA-3 FATTY ACIDS
  14. LOTEMAX [Concomitant]
     Active Substance: LOTEPREDNOL ETABONATE
  15. PROBIOTIC [Concomitant]
     Active Substance: PROBIOTICS NOS
  16. CENTRUM SILVER [Concomitant]
     Active Substance: MINERALS\VITAMINS
  17. JAKAFI [Suspect]
     Active Substance: RUXOLITINIB
     Indication: MYELOFIBROSIS
     Route: 048
     Dates: start: 201512
  18. CURCUMIN [Concomitant]
     Active Substance: CURCUMIN
  19. THERATEARS [Concomitant]
     Active Substance: CARBOXYMETHYLCELLULOSE SODIUM
  20. COQ10 [Concomitant]
     Active Substance: UBIDECARENONE
  21. VITAMIN E [Concomitant]
     Active Substance: .ALPHA.-TOCOPHEROL
  22. ACIDOPHILUS [Concomitant]
     Active Substance: LACTOBACILLUS ACIDOPHILUS
  23. NEXIUM [Suspect]
     Active Substance: ESOMEPRAZOLE MAGNESIUM
     Indication: PRODUCT USED FOR UNKNOWN INDICATION
     Route: 048
  24. ASPIRIN. [Concomitant]
     Active Substance: ASPIRIN

REACTIONS (9)
  - Infection [Unknown]
  - Furuncle [Unknown]
  - Haemoglobin decreased [Unknown]
  - Cataract [Unknown]
  - Hypotrichosis [Unknown]
  - Eye disorder [Unknown]
  - Anaemia [Unknown]
  - Vitamin D decreased [Unknown]
  - Diarrhoea [Unknown]
